FAERS Safety Report 8532694-3 (Version None)
Quarter: 2012Q3

REPORT INFORMATION
  Report Type: 
  Country: None (occurrence: None)
  Receive Date: 20120724
  Receipt Date: 20120717
  Transmission Date: 20120928
  Serious: Yes (Other)
  Sender: FDA-Public Use
  Company Number: PHHY2012JP061947

PATIENT
  Age: 35 Year
  Sex: Female

DRUGS (2)
  1. PREDNISOLONE [Concomitant]
     Indication: LUPUS NEPHRITIS
     Route: 048
  2. CYCLOSPORINE [Suspect]
     Indication: LUPUS NEPHRITIS
     Route: 048

REACTIONS (4)
  - RENAL IMPAIRMENT [None]
  - CONDITION AGGRAVATED [None]
  - ASCITES [None]
  - PERITONITIS LUPUS [None]
